FAERS Safety Report 4436979-1 (Version None)
Quarter: 2004Q3

REPORT INFORMATION
  Report Type: 
  Country: None (occurrence: None)
  Receive Date: 20040830
  Receipt Date: 20040204
  Transmission Date: 20050211
  Serious: No
  Sender: FDA-Public Use
  Company Number: US-GLAXOSMITHKLINE-A0496676A

PATIENT
  Age: 61 Year
  Sex: Female

DRUGS (3)
  1. BECONASE [Suspect]
     Indication: POSTNASAL DRIP
     Route: 045
  2. ALBUTEROL [Concomitant]
  3. AZMACORT [Concomitant]

REACTIONS (4)
  - DRUG INEFFECTIVE [None]
  - EAR PAIN [None]
  - MIDDLE EAR EFFUSION [None]
  - PRURITUS [None]
